FAERS Safety Report 9170674 (Version 1)
Quarter: 2013Q1

REPORT INFORMATION
  Report Type: Spontaneous
  Country: GB (occurrence: GB)
  Receive Date: 20130319
  Receipt Date: 20130319
  Transmission Date: 20140127
  Serious: Yes (Disabling)
  Sender: FDA-Public Use
  Company Number: GB-TEVA-390983ISR

PATIENT
  Age: 70 Year
  Sex: Female
  Weight: 59 kg

DRUGS (1)
  1. ATORVASTATIN [Suspect]
     Indication: BLOOD CHOLESTEROL INCREASED
     Route: 048
     Dates: start: 201205, end: 201211

REACTIONS (5)
  - Muscular weakness [Recovered/Resolved]
  - Muscle disorder [Recovered/Resolved]
  - Gait disturbance [Recovered/Resolved]
  - Activities of daily living impaired [Recovered/Resolved]
  - Product substitution issue [Unknown]
